FAERS Safety Report 11333589 (Version 1)
Quarter: 2015Q3

REPORT INFORMATION
  Report Type: Spontaneous
  Country: US (occurrence: US)
  Receive Date: 20150803
  Receipt Date: 20150803
  Transmission Date: 20151125
  Serious: Yes (Other)
  Sender: FDA-Public Use
  Company Number: US-ELI_LILLY_AND_COMPANY-US200803003429

PATIENT
  Sex: Male
  Weight: 106.58 kg

DRUGS (3)
  1. DEPAKOTE [Concomitant]
     Active Substance: DIVALPROEX SODIUM
     Dates: start: 20000105
  2. LITHANE [Concomitant]
     Active Substance: LITHIUM CARBONATE
     Dates: start: 20000314, end: 20000608
  3. ZYPREXA [Suspect]
     Active Substance: OLANZAPINE
     Indication: MENTAL DISORDER
     Dosage: 10 MG, UNK
     Dates: start: 20000509, end: 20001230

REACTIONS (2)
  - Pancreatitis [Not Recovered/Not Resolved]
  - Diabetes mellitus [Not Recovered/Not Resolved]
